FAERS Safety Report 14403716 (Version 2)
Quarter: 2018Q1

REPORT INFORMATION
  Report Type: Spontaneous
  Country: US (occurrence: US)
  Receive Date: 20180117
  Receipt Date: 20180222
  Transmission Date: 20180509
  Serious: Yes (Other)
  Sender: FDA-Public Use
  Company Number: US-BEH-2018086897

PATIENT

DRUGS (1)
  1. KCENTRA [Suspect]
     Active Substance: COAGULATION FACTOR IX HUMAN\COAGULATION FACTOR VII HUMAN\COAGULATION FACTOR X HUMAN\PROTEIN C\PROTEIN S HUMAN\PROTHROMBIN
     Indication: PRODUCT USED FOR UNKNOWN INDICATION
     Dosage: UNK
     Route: 065

REACTIONS (5)
  - Injection site extravasation [Unknown]
  - Thrombophlebitis superficial [Recovering/Resolving]
  - Venous thrombosis limb [Recovering/Resolving]
  - Oedema [Recovering/Resolving]
  - Injection site mass [Unknown]

NARRATIVE: CASE EVENT DATE: 20180116
